FAERS Safety Report 25681399 (Version 1)
Quarter: 2025Q3

REPORT INFORMATION
  Report Type: Spontaneous
  Country: US (occurrence: None)
  Receive Date: 20250813
  Receipt Date: 20250813
  Transmission Date: 20251020
  Serious: Yes (Hospitalization, Other)
  Sender: FDA-CTU
  Company Number: None

PATIENT
  Age: 41 Year
  Sex: Female
  Weight: 64.86 kg

DRUGS (5)
  1. HERBALS [Suspect]
     Active Substance: HERBALS
  2. VALIUM [Concomitant]
     Active Substance: DIAZEPAM
  3. WARFARIN [Concomitant]
     Active Substance: WARFARIN
  4. CARVEDILOL [Concomitant]
     Active Substance: CARVEDILOL
  5. AMBIEN [Concomitant]
     Active Substance: ZOLPIDEM TARTRATE

REACTIONS (8)
  - Product communication issue [None]
  - Illness [None]
  - Drug dependence [None]
  - Muscle spasms [None]
  - Nausea [None]
  - Hyperhidrosis [None]
  - Palpitations [None]
  - Product complaint [None]

NARRATIVE: CASE EVENT DATE: 20241111
